FAERS Safety Report 8063197-0 (Version None)
Quarter: 2011Q4

REPORT INFORMATION
  Report Type: 
  Country: None (occurrence: None)
  Receive Date: 20111220
  Receipt Date: 20110525
  Transmission Date: 20120403
  Serious: Yes (Other)
  Sender: FDA-Public Use
  Company Number: PHHY2011US34365

PATIENT
  Sex: Male

DRUGS (16)
  1. PROGRAF [Suspect]
     Indication: RENAL TRANSPLANT
     Dosage: 3 MG, BID, ORAL
     Route: 048
     Dates: start: 20091112
  2. VITAMIN E [Concomitant]
  3. FERROUS SULFATE TAB [Concomitant]
  4. MAGNESIUM (MAGNESIUM) [Concomitant]
  5. CLONAZEPAM [Concomitant]
  6. BLACK COHOSH (CIMICIFUGA RACEMOSA ROOT) [Concomitant]
  7. LOVAZA [Concomitant]
  8. MULTIVITAMINS (ASCORBIC ACID, ERGOCALCIFEROL, FOLIC ACID, NICOTINAMIDE [Concomitant]
  9. NIACIN [Concomitant]
  10. MYFORTIC [Suspect]
     Indication: COMPLICATIONS OF TRANSPLANTED KIDNEY
     Dosage: 540 MG,  BID, ORAL
     Route: 048
     Dates: start: 20091101, end: 20110301
  11. MYFORTIC [Suspect]
     Indication: COMPLICATIONS OF TRANSPLANTED KIDNEY
     Dosage: 540 MG,  BID, ORAL
     Route: 048
     Dates: start: 20091112
  12. OMEPRAZOLE [Concomitant]
  13. LEVOTHYROXINE SODIUM [Concomitant]
  14. VITAMIN D [Concomitant]
  15. VACCINIUM MACROCARPON (VACCINIUM MACROCARPON) [Concomitant]
  16. HYDROCODONE BITARTRATE [Concomitant]

REACTIONS (3)
  - WHITE BLOOD CELL COUNT DECREASED [None]
  - RASH MACULAR [None]
  - SQUAMOUS CELL CARCINOMA [None]
